FAERS Safety Report 24536689 (Version 1)
Quarter: 2024Q4

REPORT INFORMATION
  Report Type: Spontaneous
  Country: US (occurrence: US)
  Receive Date: 20241022
  Receipt Date: 20241022
  Transmission Date: 20250114
  Serious: No
  Sender: SANOFI AVENTIS
  Company Number: US-SA-2024SA301376

PATIENT
  Age: 46 Year
  Sex: Female
  Weight: 52.16 kg

DRUGS (10)
  1. DUPIXENT [Suspect]
     Active Substance: DUPILUMAB
     Indication: Neurodermatitis
     Dosage: 600 MG, 1X
     Route: 058
  2. DUPIXENT [Suspect]
     Active Substance: DUPILUMAB
     Dosage: 300 MG, QOW
     Route: 058
  3. TALTZ [Concomitant]
     Active Substance: IXEKIZUMAB
  4. CHONDROITIN SULFATE (BOVINE)\GLUCOSAMINE HYDROCHLORIDE [Concomitant]
     Active Substance: CHONDROITIN SULFATE (BOVINE)\GLUCOSAMINE HYDROCHLORIDE
  5. AMLODIPINE BESYLATE [Concomitant]
     Active Substance: AMLODIPINE BESYLATE
     Dosage: 10.000MG
  6. VITAMINS [Concomitant]
     Active Substance: VITAMINS
  7. CARISOPRODOL [Concomitant]
     Active Substance: CARISOPRODOL
     Dosage: 250.000MG
  8. DULOXETINE HYDROCHLORIDE [Concomitant]
     Active Substance: DULOXETINE HYDROCHLORIDE
     Dosage: 20.000MG
  9. MODERNA COVID-19 VACCINE [Concomitant]
     Active Substance: ELASOMERAN
  10. HYDROCHLOROTHIAZIDE\TRIAMTERENE [Concomitant]
     Active Substance: HYDROCHLOROTHIAZIDE\TRIAMTERENE

REACTIONS (2)
  - Fatigue [Unknown]
  - Back pain [Unknown]

NARRATIVE: CASE EVENT DATE: 20241007
